FAERS Safety Report 25918131 (Version 1)
Quarter: 2025Q4

REPORT INFORMATION
  Report Type: Spontaneous
  Country: CH (occurrence: CH)
  Receive Date: 20251014
  Receipt Date: 20251014
  Transmission Date: 20260118
  Serious: Yes (Other)
  Sender: MYLAN
  Company Number: None

PATIENT
  Age: 58 Year
  Sex: Male

DRUGS (8)
  1. CLOZAPINE [Suspect]
     Active Substance: CLOZAPINE
     Indication: Schizophrenia
     Dosage: 225 MILLIGRAM, QD
  2. CLOZAPINE [Suspect]
     Active Substance: CLOZAPINE
     Dosage: 225 MILLIGRAM, QD
     Route: 048
  3. CLOZAPINE [Suspect]
     Active Substance: CLOZAPINE
     Dosage: 225 MILLIGRAM, QD
     Route: 048
  4. CLOZAPINE [Suspect]
     Active Substance: CLOZAPINE
     Dosage: 225 MILLIGRAM, QD
  5. GINKGO [Concomitant]
     Active Substance: GINKGO
     Dosage: 1500 MILLIGRAM, QD (500 MG 2 IN THE MORNING, 1 AT NOON)
  6. GINKGO [Concomitant]
     Active Substance: GINKGO
     Dosage: 1500 MILLIGRAM, QD (500 MG 2 IN THE MORNING, 1 AT NOON)
     Route: 048
  7. GINKGO [Concomitant]
     Active Substance: GINKGO
     Dosage: 1500 MILLIGRAM, QD (500 MG 2 IN THE MORNING, 1 AT NOON)
     Route: 048
  8. GINKGO [Concomitant]
     Active Substance: GINKGO
     Dosage: 1500 MILLIGRAM, QD (500 MG 2 IN THE MORNING, 1 AT NOON)

REACTIONS (1)
  - Ejection fraction decreased [Unknown]

NARRATIVE: CASE EVENT DATE: 20250820
